FAERS Safety Report 5234459-7 (Version None)
Quarter: 2007Q1

REPORT INFORMATION
  Report Type: 
  Country: None (occurrence: None)
  Receive Date: 20070209
  Receipt Date: 20070202
  Transmission Date: 20070707
  Serious: Yes (Other)
  Sender: FDA-Public Use
  Company Number: GB-GLAXOSMITHKLINE-B0456922A

PATIENT
  Age: 21 Year
  Sex: Female

DRUGS (3)
  1. MALARONE [Suspect]
     Indication: MALARIA PROPHYLAXIS
     Route: 048
     Dates: start: 20070101
  2. CIPROFLOXACIN [Concomitant]
  3. MICROGYNON [Concomitant]

REACTIONS (2)
  - HALLUCINATION, VISUAL [None]
  - SLEEP TERROR [None]
